FAERS Safety Report 20612654 (Version 2)
Quarter: 2022Q2

REPORT INFORMATION
  Report Type: Report from Study
  Country: US (occurrence: US)
  Receive Date: 20220318
  Receipt Date: 20220404
  Transmission Date: 20220721
  Serious: Yes (Other)
  Sender: FDA-Public Use
  Company Number: US-NOVARTISPH-NVSC2022US061499

PATIENT
  Age: 43 Year
  Sex: Female

DRUGS (2)
  1. PREDNISOLONE [Suspect]
     Active Substance: PREDNISOLONE
     Indication: Product used for unknown indication
     Dosage: UNK
     Route: 065
  2. DEXAMETHASONE [Concomitant]
     Active Substance: DEXAMETHASONE
     Indication: Product used for unknown indication
     Dosage: UNK
     Route: 065

REACTIONS (23)
  - Immune thrombocytopenia [Unknown]
  - Self-injurious ideation [Unknown]
  - Fatigue [Unknown]
  - Platelet count abnormal [Unknown]
  - Cognitive disorder [Unknown]
  - Mood altered [Unknown]
  - Depressed mood [Unknown]
  - Initial insomnia [Unknown]
  - Hypersomnia [Unknown]
  - Decreased appetite [Unknown]
  - Hyperphagia [Unknown]
  - Feeling abnormal [Unknown]
  - Disturbance in attention [Unknown]
  - Restlessness [Unknown]
  - Decreased activity [Unknown]
  - Rash macular [Unknown]
  - Petechiae [Unknown]
  - Rash [Unknown]
  - Stress [Unknown]
  - Anxiety [Unknown]
  - Drug ineffective [Unknown]
  - Treatment failure [Unknown]
  - Therapeutic product effect decreased [Unknown]
